FAERS Safety Report 6685128-8 (Version None)
Quarter: 2010Q2

REPORT INFORMATION
  Report Type: 
  Country: None (occurrence: None)
  Receive Date: 20100416
  Receipt Date: 20091116
  Transmission Date: 20101027
  Serious: Yes (Other)
  Sender: FDA-Public Use
  Company Number: US-BRISTOL-MYERS SQUIBB COMPANY-14863195

PATIENT
  Age: 55 Year
  Sex: Female

DRUGS (2)
  1. CARBOPLATIN [Suspect]
     Indication: BREAST CANCER METASTATIC
     Dates: start: 20090301, end: 20090301
  2. TAXOTERE [Suspect]
     Indication: BREAST CANCER METASTATIC
     Dosage: ALSO TAKEN VIA IV, THE DOSE PRIOR TO 06-MAR-2009 SKIPPED FOR BLOOD AND PLATELET INFUSION.
     Route: 042
     Dates: end: 20090306

REACTIONS (1)
  - MALIGNANT NEOPLASM PROGRESSION [None]
